FAERS Safety Report 16377868 (Version 2)
Quarter: 2019Q2

REPORT INFORMATION
  Report Type: Report from Study
  Country: US (occurrence: US)
  Receive Date: 20190531
  Receipt Date: 20190618
  Transmission Date: 20190711
  Serious: Yes (Death, Hospitalization)
  Sender: FDA-Public Use
  Company Number: US-EISAI MEDICAL RESEARCH-EC-2019-053536

PATIENT
  Sex: Male
  Weight: 81 kg

DRUGS (21)
  1. AMLODIPINE BESYALTE [Concomitant]
  2. JANUVIA [Concomitant]
     Active Substance: SITAGLIPTIN PHOSPHATE
  3. GLIPIZIDE. [Concomitant]
     Active Substance: GLIPIZIDE
  4. MORPHINE [Concomitant]
     Active Substance: MORPHINE
  5. BREO ELLIPTA [Concomitant]
     Active Substance: FLUTICASONE FUROATE\VILANTEROL TRIFENATATE
  6. ALBUTEROL SULFATE. [Concomitant]
     Active Substance: ALBUTEROL SULFATE
  7. OXYCONTIN [Concomitant]
     Active Substance: OXYCODONE HYDROCHLORIDE
  8. DEXAMETHASONE. [Concomitant]
     Active Substance: DEXAMETHASONE
  9. HYDROCHLOROTHIAZIDE. [Concomitant]
     Active Substance: HYDROCHLOROTHIAZIDE
  10. TYLENOL [Concomitant]
     Active Substance: ACETAMINOPHEN
  11. LENVIMA [Suspect]
     Active Substance: LENVATINIB
     Indication: RENAL CANCER
     Route: 048
     Dates: start: 201902, end: 201905
  12. AFINITOR [Concomitant]
     Active Substance: EVEROLIMUS
  13. BENZONATATE. [Concomitant]
     Active Substance: BENZONATATE
  14. DIPHENHYDRAMINE. [Concomitant]
     Active Substance: DIPHENHYDRAMINE
  15. NALOXONE [Concomitant]
     Active Substance: NALOXONE
  16. AZITHROMYCIN ANHYDROUS. [Concomitant]
     Active Substance: AZITHROMYCIN ANHYDROUS
  17. OXYCODONE [Concomitant]
     Active Substance: OXYCODONE
  18. DRONABINOL. [Concomitant]
     Active Substance: DRONABINOL
  19. LIDOCAINE. [Concomitant]
     Active Substance: LIDOCAINE
  20. PROMETHAZINE [Concomitant]
     Active Substance: PROMETHAZINE\PROMETHAZINE HYDROCHLORIDE
  21. HYDROCORTISONE. [Concomitant]
     Active Substance: HYDROCORTISONE

REACTIONS (10)
  - Joint stiffness [Recovering/Resolving]
  - Back pain [Unknown]
  - Decreased appetite [Unknown]
  - Death [Fatal]
  - Pleural effusion [Unknown]
  - Malaise [Unknown]
  - Bone pain [Unknown]
  - Dyspnoea [Unknown]
  - Rash [Unknown]
  - Blood pressure increased [Unknown]

NARRATIVE: CASE EVENT DATE: 2019
